FAERS Safety Report 12432258 (Version 1)
Quarter: 2016Q2

REPORT INFORMATION
  Report Type: Spontaneous
  Country: GB (occurrence: GB)
  Receive Date: 20160603
  Receipt Date: 20160603
  Transmission Date: 20160815
  Serious: Yes (Other)
  Sender: FDA-Public Use
  Company Number: GB-TEVA-663718ACC

PATIENT
  Age: 63 Year
  Sex: Male

DRUGS (2)
  1. BENDAMUSTINE HYDROCHLORIDE. [Suspect]
     Active Substance: BENDAMUSTINE HYDROCHLORIDE
     Indication: DIFFUSE LARGE B-CELL LYMPHOMA
     Dosage: (DAYS 1 AND 2)
     Route: 042
  2. REVLIMID [Suspect]
     Active Substance: LENALIDOMIDE
     Indication: DIFFUSE LARGE B-CELL LYMPHOMA
     Dosage: (21 DAYS OF 28 DAYS)
     Route: 048

REACTIONS (4)
  - Off label use [Unknown]
  - Neutropenia [Unknown]
  - Thrombocytopenia [Unknown]
  - Peroneal nerve palsy [Unknown]
